FAERS Safety Report 9437648 (Version 1)
Quarter: 2013Q3

REPORT INFORMATION
  Report Type: Spontaneous
  Country: US (occurrence: None)
  Receive Date: 20130731
  Receipt Date: 20130731
  Transmission Date: 20140515
  Serious: Yes (Hospitalization, Other)
  Sender: FDA-Public Use
  Company Number: AUR-APL-2013-06191

PATIENT
  Age: 17 Year
  Sex: Male

DRUGS (1)
  1. VALPROATE SEMISODIUM [Suspect]
     Dosage: 1500 MG, 1 D, UNKNOWN

REACTIONS (3)
  - Hyperammonaemic encephalopathy [None]
  - Aggression [None]
  - Grand mal convulsion [None]
